FAERS Safety Report 5036376-4 (Version None)
Quarter: 2006Q2

REPORT INFORMATION
  Report Type: 
  Country: None (occurrence: None)
  Receive Date: 20060601
  Receipt Date: 20060419
  Transmission Date: 20061013
  Serious: No
  Sender: FDA-Public Use
  Company Number: US200604003182

PATIENT
  Age: 45 Year
  Sex: Male

DRUGS (3)
  1. CYMBALTA [Suspect]
     Indication: DEPRESSION
     Dosage: 60 MG, DAILY (1/D)
     Dates: start: 20060101, end: 20060101
  2. OXYCODONE (OXYCODONE) [Concomitant]
  3. PERCOCET [Concomitant]

REACTIONS (3)
  - APATHY [None]
  - DEPRESSION [None]
  - FEELING ABNORMAL [None]
